FAERS Safety Report 6197441-1 (Version None)
Quarter: 2009Q2

REPORT INFORMATION
  Report Type: 
  Country: None (occurrence: None)
  Receive Date: 20090521
  Receipt Date: 20090509
  Transmission Date: 20091009
  Serious: Yes (Death, Other)
  Sender: FDA-Public Use
  Company Number: PH-BAXTER-2009BH008399

PATIENT
  Age: 18 Year
  Sex: Male

DRUGS (1)
  1. DIANEAL [Suspect]
     Indication: RENAL FAILURE CHRONIC
     Route: 033
     Dates: start: 20080703

REACTIONS (4)
  - CONVULSION [None]
  - DEATH [None]
  - DYSPNOEA [None]
  - PYREXIA [None]
